FAERS Safety Report 5014708-0 (Version None)
Quarter: 2006Q2

REPORT INFORMATION
  Report Type: 
  Country: None (occurrence: None)
  Receive Date: 20060531
  Receipt Date: 20060410
  Transmission Date: 20061013
  Serious: Yes (Other)
  Sender: FDA-Public Use
  Company Number: US-GLAXOSMITHKLINE-A0601153A

PATIENT
  Age: 54 Year
  Sex: Female
  Weight: 59.1 kg

DRUGS (3)
  1. LAMICTAL [Suspect]
     Indication: BIPOLAR DISORDER
     Dosage: 200MG TWICE PER DAY
     Route: 048
     Dates: start: 20050101
  2. AUGMENTIN '125' [Suspect]
     Indication: BRONCHITIS
     Dosage: 875MG UNKNOWN
     Route: 048
     Dates: start: 20060408
  3. AMOXICILLIN [Suspect]
     Indication: BRONCHITIS
     Dosage: 500MG UNKNOWN
     Route: 048

REACTIONS (6)
  - DEPRESSIVE SYMPTOM [None]
  - DRUG INEFFECTIVE [None]
  - DRUG INTERACTION [None]
  - EMOTIONAL DISTRESS [None]
  - MOOD ALTERED [None]
  - SUICIDAL IDEATION [None]
